FAERS Safety Report 4673902-9 (Version None)
Quarter: 2005Q2

REPORT INFORMATION
  Report Type: 
  Country: None (occurrence: None)
  Receive Date: 20050524
  Receipt Date: 20050510
  Transmission Date: 20051028
  Serious: Yes (Other)
  Sender: FDA-Public Use
  Company Number: GBS050517356

PATIENT
  Age: 63 Year
  Sex: Female
  Weight: 70 kg

DRUGS (12)
  1. YENTREVE (DULOXETINE HYDROCHLORIDE) [Suspect]
     Indication: URINARY INCONTINENCE
     Dosage: 40 MG
     Dates: start: 20041129, end: 20050210
  2. PENICILLAMINE [Concomitant]
  3. IMDUR [Concomitant]
  4. CO-AMILOFRUSE [Concomitant]
  5. DOSULEPIN [Concomitant]
  6. CO-DYDRAMOL [Concomitant]
  7. NICORANDIL [Concomitant]
  8. DILTIAZEM HYDROCHLORIDE [Concomitant]
  9. CLOPIDOGREL [Concomitant]
  10. KOLANTICON [Concomitant]
  11. CLOFAC (MEBEVERINE HYDROCHLROIDE) [Concomitant]
  12. QUININE SULPHATE [Concomitant]

REACTIONS (2)
  - GAMMA-GLUTAMYLTRANSFERASE INCREASED [None]
  - LIVER FUNCTION TEST ABNORMAL [None]
